FAERS Safety Report 5604883-9 (Version None)
Quarter: 2008Q1

REPORT INFORMATION
  Report Type: 
  Country: None (occurrence: None)
  Receive Date: 20080128
  Receipt Date: 20080125
  Transmission Date: 20080703
  Serious: Yes (Other)
  Sender: FDA-Public Use
  Company Number: US-ASTRAZENECA-2007UW28268

PATIENT
  Age: 55 Year
  Sex: Male
  Weight: 77.3 kg

DRUGS (2)
  1. NEXIUM [Suspect]
     Indication: GASTROOESOPHAGEAL REFLUX DISEASE
     Route: 048
     Dates: start: 20070901
  2. NEXIUM [Suspect]
     Route: 048

REACTIONS (1)
  - TRANSIENT ISCHAEMIC ATTACK [None]
